FAERS Safety Report 4484155-9 (Version None)
Quarter: 2004Q4

REPORT INFORMATION
  Report Type: 
  Country: None (occurrence: None)
  Receive Date: 20041025
  Receipt Date: 20041014
  Transmission Date: 20050328
  Serious: Yes (Death)
  Sender: FDA-Public Use
  Company Number: TN-MERCK-0410USA02336

PATIENT
  Sex: Male

DRUGS (4)
  1. VIOXX [Suspect]
     Route: 048
     Dates: start: 20020523, end: 20030228
  2. CORVASAL [Concomitant]
     Route: 065
  3. TENORMIN [Concomitant]
     Route: 065
  4. VASTAREL [Concomitant]
     Route: 065

REACTIONS (1)
  - MYOCARDIAL INFARCTION [None]
